FAERS Safety Report 9450527 (Version 2)
Quarter: 2013Q3

REPORT INFORMATION
  Report Type: Spontaneous
  Country: US (occurrence: US)
  Receive Date: 20130809
  Receipt Date: 20130827
  Transmission Date: 20140515
  Serious: Yes (Other)
  Sender: FDA-Public Use
  Company Number: US-009507513-1308USA003661

PATIENT
  Sex: Female
  Weight: 98.41 kg

DRUGS (5)
  1. JANUVIA [Suspect]
     Indication: TYPE 2 DIABETES MELLITUS
     Dosage: 100 MG, ONCE DAILY
     Route: 048
     Dates: end: 20130806
  2. CRESTOR [Concomitant]
     Dosage: TOTAL DAILY DOSE: 10 MG
     Route: 048
  3. LISINOPRIL [Concomitant]
     Dosage: TOTAL DAILY DOSE: 20 MG
     Route: 048
  4. CYMBALTA [Concomitant]
     Dosage: TOTAL DAILY DOSE: 100 MG
     Route: 048
  5. METFORMIN [Concomitant]
     Dosage: TOTAL DAILY DOSE: 2000 MG
     Route: 048

REACTIONS (1)
  - Pancreatitis [Recovered/Resolved]
